FAERS Safety Report 9222418 (Version 4)
Quarter: 2013Q3

REPORT INFORMATION
  Report Type: Spontaneous
  Country: US (occurrence: US)
  Receive Date: 20130410
  Receipt Date: 20130805
  Transmission Date: 20140515
  Serious: Yes (Other)
  Sender: FDA-Public Use
  Company Number: US-ELI_LILLY_AND_COMPANY-US201304000454

PATIENT
  Age: 55 Year
  Sex: Female
  Weight: 93.88 kg

DRUGS (18)
  1. CYMBALTA [Suspect]
     Indication: ANXIETY
     Dosage: 60 MG, UNKNOWN
     Dates: start: 201209
  2. CYMBALTA [Suspect]
     Indication: DEPRESSION
     Dosage: Q60 MG, UNK
     Route: 048
     Dates: start: 20120710
  3. CYMBALTA [Suspect]
     Dosage: 90 MG, QD
     Route: 048
     Dates: start: 20121129
  4. CYMBALTA [Suspect]
     Dosage: 120 MG, UNKNOWN
  5. BYETTA [Concomitant]
  6. FLONASE [Concomitant]
     Dosage: 1 DF, PRN
  7. ASA [Concomitant]
     Dosage: 81 MG, UNKNOWN
  8. ZOFRAN [Concomitant]
     Dosage: 4 MG, TID
  9. VICODIN [Concomitant]
     Dosage: 1 DF, QID
  10. GLUCOTROL [Concomitant]
     Dosage: 5 MG, BID
  11. METFORMIN [Concomitant]
     Dosage: 0 UNK, UNK
  12. DIOVAN [Concomitant]
     Indication: HYPERTENSION
     Dosage: 160 MG, UNKNOWN
  13. IBUPROFEN [Concomitant]
  14. LIVALO [Concomitant]
  15. MELATONIN [Concomitant]
     Dosage: 5 MG, OTHER
  16. LAMICTAL [Concomitant]
  17. LEXAPRO [Concomitant]
  18. VITAMIN D [Concomitant]
     Dosage: 5000 U, QD

REACTIONS (3)
  - Pseudophaeochromocytoma [Recovered/Resolved]
  - Alanine aminotransferase increased [Unknown]
  - Aspartate aminotransferase increased [Unknown]
